FAERS Safety Report 24277060 (Version 2)
Quarter: 2024Q4

REPORT INFORMATION
  Report Type: Spontaneous
  Country: JP (occurrence: JP)
  Receive Date: 20240903
  Receipt Date: 20241121
  Transmission Date: 20250115
  Serious: No
  Sender: MERCK
  Company Number: JP-MSD-M2024-33657

PATIENT
  Age: 76 Year
  Sex: Male

DRUGS (4)
  1. KEYTRUDA [Suspect]
     Active Substance: PEMBROLIZUMAB
     Indication: Bile duct cancer
     Dosage: 200 MILLIGRAM, Q3W
     Route: 041
     Dates: start: 20240814
  2. GEMCITABINE HYDROCHLORIDE [Suspect]
     Active Substance: GEMCITABINE HYDROCHLORIDE
     Indication: Bile duct cancer
     Dosage: UNK
     Route: 041
     Dates: start: 20240814, end: 20240821
  3. GEMCITABINE HYDROCHLORIDE [Suspect]
     Active Substance: GEMCITABINE HYDROCHLORIDE
     Dosage: 25% REDUCTION
     Route: 041
     Dates: start: 2024
  4. CISPLATIN [Suspect]
     Active Substance: CISPLATIN
     Indication: Bile duct cancer
     Dosage: UNK
     Route: 041
     Dates: start: 20240814, end: 20240821

REACTIONS (1)
  - Platelet count decreased [Recovering/Resolving]

NARRATIVE: CASE EVENT DATE: 20240821
